FAERS Safety Report 24412427 (Version 1)
Quarter: 2024Q4

REPORT INFORMATION
  Report Type: Spontaneous
  Country: FR (occurrence: FR)
  Receive Date: 20241008
  Receipt Date: 20241008
  Transmission Date: 20250114
  Serious: Yes (Hospitalization)
  Sender: BRISTOL MYERS SQUIBB
  Company Number: FR-BRISTOL-MYERS SQUIBB COMPANY-2024-157434

PATIENT
  Age: 70 Year
  Sex: Male
  Weight: 105 kg

DRUGS (11)
  1. ELIQUIS [Suspect]
     Active Substance: APIXABAN
     Indication: Anticoagulant therapy
     Route: 048
  2. AVELUMAB [Suspect]
     Active Substance: AVELUMAB
     Indication: Prostate cancer metastatic
     Dosage: 8 CYCLES
     Route: 042
     Dates: start: 20240221
  3. AVELUMAB [Suspect]
     Active Substance: AVELUMAB
     Dosage: 8 CYCLES
     Route: 042
     Dates: start: 20240820
  4. REGORAFENIB [Suspect]
     Active Substance: REGORAFENIB
     Indication: Prostate cancer metastatic
     Dosage: 8 CYCLES
     Route: 048
     Dates: start: 20240207
  5. REGORAFENIB [Suspect]
     Active Substance: REGORAFENIB
     Dosage: 8 CYCLES
     Route: 048
     Dates: start: 20240902
  6. FUROSEMIDE [Concomitant]
     Active Substance: FUROSEMIDE
     Indication: Product used for unknown indication
     Route: 048
  7. BISOPROLOL FUMARATE [Concomitant]
     Active Substance: BISOPROLOL FUMARATE
     Indication: Product used for unknown indication
     Route: 048
  8. CANDESARTAN [Concomitant]
     Active Substance: CANDESARTAN
     Indication: Product used for unknown indication
     Route: 048
  9. AMIODARONE [Concomitant]
     Active Substance: AMIODARONE
     Indication: Product used for unknown indication
     Route: 048
  10. LEUPROLIDE ACETATE [Concomitant]
     Active Substance: LEUPROLIDE ACETATE
     Indication: Product used for unknown indication
     Route: 048
  11. CORTICOSTEROID NOS [Concomitant]
     Active Substance: CORTICOSTEROID NOS
     Indication: Product used for unknown indication

REACTIONS (2)
  - Diplopia [Not Recovered/Not Resolved]
  - Drug ineffective [Unknown]

NARRATIVE: CASE EVENT DATE: 20240830
